FAERS Safety Report 12209231 (Version 2)
Quarter: 2016Q2

REPORT INFORMATION
  Report Type: Spontaneous
  Country: JP (occurrence: JP)
  Receive Date: 20160324
  Receipt Date: 20160425
  Transmission Date: 20160815
  Serious: Yes (Other)
  Sender: FDA-Public Use
  Company Number: PHJP2016JP004621

PATIENT
  Age: 41 Year
  Sex: Female
  Weight: 69 kg

DRUGS (16)
  1. DEPAKENE [Concomitant]
     Active Substance: VALPROIC ACID
     Indication: STRESS
  2. COSENTYX [Suspect]
     Active Substance: SECUKINUMAB
     Indication: PSORIASIS
     Dosage: 300 MG, QW
     Route: 058
     Dates: start: 20160128, end: 20160218
  3. MAGMITT [Concomitant]
     Active Substance: MAGNESIUM OXIDE
     Indication: PRODUCT USED FOR UNKNOWN INDICATION
     Route: 048
  4. TASMOLIN [Concomitant]
     Active Substance: BIPERIDEN
     Indication: EPILEPSY
     Route: 048
  5. RISPERDAL [Concomitant]
     Active Substance: RISPERIDONE
     Indication: EPILEPSY
     Route: 048
  6. ZYPREXA [Concomitant]
     Active Substance: OLANZAPINE
     Indication: EPILEPSY
     Route: 065
  7. OXAROL [Suspect]
     Active Substance: MAXACALCITOL
     Indication: PSORIASIS
     Dosage: 2 G, UNK
     Route: 062
     Dates: start: 20151119
  8. RISPERDAL [Concomitant]
     Active Substance: RISPERIDONE
     Indication: STRESS
  9. OXAROL [Suspect]
     Active Substance: MAXACALCITOL
     Dosage: 5 G, QD
     Route: 062
     Dates: start: 20160128
  10. SELOKEN [Concomitant]
     Active Substance: METOPROLOL
     Indication: PRODUCT USED FOR UNKNOWN INDICATION
     Route: 048
  11. ANTEBATE [Concomitant]
     Active Substance: BETAMETHASONE DIPROPIONATE
     Indication: PSORIASIS
     Dosage: 5 G, QD
     Route: 062
     Dates: start: 20160128
  12. FLUNITRAZEPAM [Concomitant]
     Active Substance: FLUNITRAZEPAM
     Indication: EPILEPSY
     Route: 048
  13. ZYPREXA [Concomitant]
     Active Substance: OLANZAPINE
     Indication: STRESS
  14. DEPAKENE [Concomitant]
     Active Substance: VALPROIC ACID
     Indication: EPILEPSY
     Route: 048
  15. TASMOLIN [Concomitant]
     Active Substance: BIPERIDEN
     Indication: STRESS
     Route: 048
  16. FLUNITRAZEPAM [Concomitant]
     Active Substance: FLUNITRAZEPAM
     Indication: STRESS

REACTIONS (1)
  - Platelet count decreased [Recovering/Resolving]

NARRATIVE: CASE EVENT DATE: 20160225
